FAERS Safety Report 12640795 (Version 2)
Quarter: 2016Q3

REPORT INFORMATION
  Report Type: Spontaneous
  Country: US (occurrence: US)
  Receive Date: 20160810
  Receipt Date: 20160812
  Transmission Date: 20161109
  Serious: Yes (Other)
  Sender: FDA-Public Use
  Company Number: US-PFIZER INC-2016372853

PATIENT
  Sex: Female

DRUGS (3)
  1. TIKOSYN [Suspect]
     Active Substance: DOFETILIDE
     Dosage: UNK
  2. TIKOSYN [Suspect]
     Active Substance: DOFETILIDE
     Dosage: UNK
     Dates: start: 2008, end: 2013
  3. ELIQUIS [Suspect]
     Active Substance: APIXABAN
     Dosage: UNK

REACTIONS (7)
  - Malaise [Unknown]
  - Hypoacusis [Unknown]
  - Glaucoma [Unknown]
  - Bronchitis [Unknown]
  - Cough [Unknown]
  - Cardiac disorder [Unknown]
  - Influenza [Unknown]
